FAERS Safety Report 15127982 (Version 1)
Quarter: 2018Q3

REPORT INFORMATION
  Report Type: Spontaneous
  Country: DE (occurrence: DE)
  Receive Date: 20180710
  Receipt Date: 20180710
  Transmission Date: 20181010
  Serious: Yes (Hospitalization)
  Sender: FDA-Public Use
  Company Number: DE-EMD SERONO-9034340

PATIENT
  Age: 59 Year
  Sex: Male

DRUGS (1)
  1. REBIF [Suspect]
     Active Substance: INTERFERON BETA-1A
     Indication: MULTIPLE SCLEROSIS
     Dates: start: 200803

REACTIONS (7)
  - Post procedural haemorrhage [Unknown]
  - Liver disorder [Unknown]
  - Anastomotic complication [Unknown]
  - Asthma [Unknown]
  - Squamous cell carcinoma of lung [Unknown]
  - Ill-defined disorder [Unknown]
  - Anastomotic infection [Unknown]
